FAERS Safety Report 12967681 (Version 5)
Quarter: 2018Q2

REPORT INFORMATION
  Report Type: Spontaneous
  Country: US (occurrence: US)
  Receive Date: 20161123
  Receipt Date: 20180422
  Transmission Date: 20180711
  Serious: No
  Sender: FDA-Public Use
  Company Number: US-TEVA-703535USA

PATIENT
  Sex: Male

DRUGS (8)
  1. HYDROCODONE [Suspect]
     Active Substance: HYDROCODONE
     Dosage: DOSE STRENGTH: 325/5MG
     Route: 065
  2. METOPROLOL. [Concomitant]
     Active Substance: METOPROLOL
     Route: 065
  3. OXYBUTYNIN. [Suspect]
     Active Substance: OXYBUTYNIN CHLORIDE
     Route: 065
     Dates: start: 201607, end: 201607
  4. XTANDI [Suspect]
     Active Substance: ENZALUTAMIDE
     Indication: PROSTATE CANCER
     Dosage: 160 MG ONCE DAILY
     Route: 048
     Dates: start: 20160212, end: 20171218
  5. LASIX [Concomitant]
     Active Substance: FUROSEMIDE
     Route: 065
  6. XGEVA [Concomitant]
     Active Substance: DENOSUMAB
     Route: 065
  7. ELIGARD [Concomitant]
     Active Substance: LEUPROLIDE ACETATE
     Route: 065
     Dates: start: 201307, end: 201307
  8. LOVASTATIN. [Concomitant]
     Active Substance: LOVASTATIN
     Route: 065

REACTIONS (3)
  - Constipation [Unknown]
  - Prostatic specific antigen increased [Unknown]
  - Drug ineffective [Unknown]
